FAERS Safety Report 6859688-8 (Version None)
Quarter: 2010Q3

REPORT INFORMATION
  Report Type: 
  Country: None (occurrence: None)
  Receive Date: 20100720
  Receipt Date: 20100713
  Transmission Date: 20110219
  Serious: Yes (Hospitalization, Other)
  Sender: FDA-Public Use
  Company Number: US-ASTRAZENECA-2010SE33339

PATIENT
  Age: 43 Year
  Sex: Male
  Weight: 83.8 kg

DRUGS (10)
  1. SEROQUEL [Suspect]
     Dosage: 200 MG-400 MG
     Route: 048
     Dates: start: 20070103
  2. LAMICTAL [Concomitant]
     Dates: start: 20070103
  3. LEXAPRO [Concomitant]
     Dosage: 10 MG-40 MG
     Dates: start: 20070103
  4. KLONOPIN [Concomitant]
     Dates: start: 20070103
  5. LYRICA [Concomitant]
     Dates: start: 20070103
  6. ASPIRIN [Concomitant]
     Dates: start: 20070120
  7. ATENOLOL [Concomitant]
     Dates: start: 20070120
  8. CAMPRAL [Concomitant]
     Dates: start: 20070120
  9. ZOCOR [Concomitant]
     Dates: start: 20070120
  10. FLEXERIL [Concomitant]
     Dosage: 10 MG BID PRN
     Dates: start: 20070120

REACTIONS (10)
  - ADJUSTMENT DISORDER [None]
  - ANGINA UNSTABLE [None]
  - CARDIAC DISORDER [None]
  - CHEST PAIN [None]
  - CONVULSION [None]
  - ESSENTIAL HYPERTENSION [None]
  - JOINT SPRAIN [None]
  - NEUROPATHY PERIPHERAL [None]
  - PLEURITIC PAIN [None]
  - SYNCOPE [None]
